FAERS Safety Report 4944571-5 (Version None)
Quarter: 2006Q1

REPORT INFORMATION
  Report Type: 
  Country: None (occurrence: None)
  Receive Date: 20060117
  Receipt Date: 20051129
  Transmission Date: 20060701
  Serious: No
  Sender: FDA-Public Use
  Company Number: 2005163509

PATIENT

DRUGS (1)
  1. MACUGEN [Suspect]
     Indication: ILL-DEFINED DISORDER
     Dosage: INTRAOCULAR
     Route: 031

REACTIONS (1)
  - SCLERAL DISORDER [None]
